FAERS Safety Report 6861396-4 (Version None)
Quarter: 2010Q3

REPORT INFORMATION
  Report Type: 
  Country: None (occurrence: None)
  Receive Date: 20100716
  Receipt Date: 20100707
  Transmission Date: 20110219
  Serious: Yes (Life-Threatening, Hospitalization)
  Sender: FDA-Public Use
  Company Number: WAES 0912USA02304

PATIENT
  Age: 71 Year
  Sex: Male
  Weight: 87.9978 kg

DRUGS (20)
  1. JANUVIA [Suspect]
     Indication: TYPE 2 DIABETES MELLITUS
     Dosage: SEE IMAGE
     Route: 048
     Dates: start: 20080422, end: 20080511
  2. JANUVIA [Suspect]
     Indication: TYPE 2 DIABETES MELLITUS
     Dosage: SEE IMAGE
     Route: 048
     Dates: start: 20080512, end: 20080606
  3. JANUVIA [Suspect]
     Indication: TYPE 2 DIABETES MELLITUS
     Dosage: SEE IMAGE
     Route: 048
     Dates: start: 20080607, end: 20080623
  4. JANUVIA [Suspect]
     Indication: TYPE 2 DIABETES MELLITUS
     Dosage: SEE IMAGE
     Route: 048
     Dates: start: 20080624, end: 20080713
  5. JANUVIA [Suspect]
     Indication: TYPE 2 DIABETES MELLITUS
     Dosage: SEE IMAGE
     Route: 048
     Dates: start: 20080714, end: 20080824
  6. JANUVIA [Suspect]
     Indication: TYPE 2 DIABETES MELLITUS
     Dosage: SEE IMAGE
     Route: 048
     Dates: start: 20080512, end: 20080913
  7. JANUVIA [Suspect]
     Indication: TYPE 2 DIABETES MELLITUS
     Dosage: SEE IMAGE
     Route: 048
     Dates: start: 20080825, end: 20080913
  8. JANUVIA [Suspect]
     Indication: TYPE 2 DIABETES MELLITUS
     Dosage: SEE IMAGE
     Route: 048
     Dates: start: 20080918, end: 20081201
  9. JANUVIA [Suspect]
     Indication: TYPE 2 DIABETES MELLITUS
     Dosage: SEE IMAGE
     Route: 048
     Dates: start: 20080918, end: 20081201
  10. ADVAIR DISKUS 100/50 [Concomitant]
  11. COZAAR [Concomitant]
  12. INSPRA [Concomitant]
  13. NEXIUM [Concomitant]
  14. ZETIA [Concomitant]
  15. ALBUTEROL [Concomitant]
  16. COLESTIPOL HYDROCHLORIDE [Concomitant]
  17. GABAPENTIN [Concomitant]
  18. POTASSIUM CHLORIDE [Concomitant]
  19. PRAVASTATIN SODIUM [Concomitant]
  20. WARFARIN SODIUM [Concomitant]

REACTIONS (3)
  - GUILLAIN-BARRE SYNDROME [None]
  - RESPIRATORY FAILURE [None]
  - SEPSIS [None]
